FAERS Safety Report 20198979 (Version 13)
Quarter: 2022Q4

REPORT INFORMATION
  Report Type: Spontaneous
  Country: AR (occurrence: AR)
  Receive Date: 20211217
  Receipt Date: 20221130
  Transmission Date: 20230113
  Serious: Yes (Other)
  Sender: FDA-Public Use
  Company Number: AR-MYLANLABS-2021M1036436

PATIENT
  Age: 34 Year
  Sex: Male

DRUGS (3)
  1. CLOZAPINE [Suspect]
     Active Substance: CLOZAPINE
     Indication: Product used for unknown indication
     Dosage: 425 MILLIGRAM, QD
     Route: 065
     Dates: start: 20080118
  2. LAMOTRIGINE [Concomitant]
     Active Substance: LAMOTRIGINE
     Dosage: 200 MILLIGRAM, QD  (200 MG/D)
     Route: 065
  3. PALIPERIDONE [Concomitant]
     Active Substance: PALIPERIDONE
     Dosage: 6 MILLIGRAM, QD (6 MG/D)
     Route: 065

REACTIONS (2)
  - Leukopenia [Recovered/Resolved]
  - Neutrophil count increased [Recovered/Resolved]

NARRATIVE: CASE EVENT DATE: 20210617
